FAERS Safety Report 9994860 (Version 1)
Quarter: 2014Q1

REPORT INFORMATION
  Report Type: Spontaneous
  Country: CH (occurrence: None)
  Receive Date: 20140306
  Receipt Date: 20140306
  Transmission Date: 20141002
  Serious: Yes (Hospitalization)
  Sender: FDA-Public Use
  Company Number: 20140093

PATIENT
  Age: 40 Year
  Sex: Female

DRUGS (4)
  1. VENOFER (IRON SUCROSE INJECTION-VIFOR) (IRON SUCROSE INJECTION) 20 MG/ML [Suspect]
     Indication: PRODUCT USED FOR UNKNOWN INDICATION
     Route: 042
     Dates: start: 20131114, end: 20131114
  2. IBEROGAST (SILYBUM MARIANUM TINCTURE) [Concomitant]
  3. SALOFALK (AMINO SALICYLIC ACID) [Concomitant]
  4. PREDNISOLONE [Concomitant]

REACTIONS (4)
  - Anxiety [None]
  - Condition aggravated [None]
  - Oedema peripheral [None]
  - Chest discomfort [None]
